FAERS Safety Report 9089393 (Version 1)
Quarter: 2013Q1

REPORT INFORMATION
  Report Type: Spontaneous
  Country: RU (occurrence: RU)
  Receive Date: 20130201
  Receipt Date: 20130201
  Transmission Date: 20140127
  Serious: Yes (Other)
  Sender: FDA-Public Use
  Company Number: RU-ABBOTT-12P-251-0973046-00

PATIENT
  Age: 41 Year
  Sex: Female
  Weight: 72 kg

DRUGS (3)
  1. KLACID [Suspect]
     Indication: TRACHEITIS
     Dosage: 500 MG DAILY, 1 TAB PER DAY
     Route: 048
     Dates: start: 20120817, end: 20120822
  2. KLACID [Suspect]
     Indication: LARYNGITIS
  3. KLACID [Suspect]
     Indication: BRONCHITIS

REACTIONS (5)
  - Deafness neurosensory [Recovered/Resolved]
  - Toxicity to various agents [Recovered/Resolved]
  - Hypoaesthesia [Not Recovered/Not Resolved]
  - Depressed level of consciousness [Not Recovered/Not Resolved]
  - Tinnitus [Not Recovered/Not Resolved]
